FAERS Safety Report 25661066 (Version 1)
Quarter: 2025Q3

REPORT INFORMATION
  Report Type: Spontaneous
  Country: CN (occurrence: CN)
  Receive Date: 20250808
  Receipt Date: 20250808
  Transmission Date: 20251021
  Serious: Yes (Other)
  Sender: AMGEN
  Company Number: CN-AMGEN-CHNSP2025152140

PATIENT

DRUGS (4)
  1. XGEVA [Suspect]
     Active Substance: DENOSUMAB
     Indication: Bone giant cell tumour
     Route: 058
  2. XGEVA [Suspect]
     Active Substance: DENOSUMAB
     Route: 058
  3. XGEVA [Suspect]
     Active Substance: DENOSUMAB
     Route: 058
  4. XGEVA [Suspect]
     Active Substance: DENOSUMAB
     Dosage: 120 MILLIGRAM, QMO, FOLLOWED BY ONCE PER MONTH
     Route: 058

REACTIONS (10)
  - Bone giant cell tumour [Unknown]
  - Pathological fracture [Unknown]
  - Spinal cord compression [Unknown]
  - Bone pain [Unknown]
  - Hypertension [Unknown]
  - Hypercalcaemia [Unknown]
  - Influenza like illness [Unknown]
  - Back pain [Unknown]
  - Hypersensitivity [Unknown]
  - Hypocalcaemia [Unknown]
